FAERS Safety Report 6088614-7 (Version None)
Quarter: 2009Q1

REPORT INFORMATION
  Report Type: 
  Country: None (occurrence: None)
  Receive Date: 20090224
  Receipt Date: 20070531
  Transmission Date: 20090719
  Serious: Yes (Death)
  Sender: FDA-Public Use
  Company Number: FR-PFIZER INC-2008157503

PATIENT

DRUGS (10)
  1. EPIRUBICIN HCL [Suspect]
     Indication: GASTRIC CANCER
     Dosage: TDD: 50 MG
     Dates: start: 20070308
  2. CISPLATIN [Suspect]
     Indication: GASTRIC CANCER
     Dosage: TDD: 40 MG
     Dates: start: 20070308
  3. CAPECITABINE [Suspect]
     Indication: GASTRIC CANCER
     Dosage: TDD:2000 MG
  4. SOLUPRED [Concomitant]
     Dosage: 20 MG, 2 TABLETS/DAY
     Route: 048
     Dates: start: 20070309, end: 20070315
  5. ZOPHREN [Concomitant]
     Dosage: 8 MG X 2/ DAY
     Dates: start: 20070309, end: 20070315
  6. GRANOCYTE [Concomitant]
     Route: 042
     Dates: start: 20070311, end: 20070317
  7. FERROUS SULFATE/FOLIC ACID [Concomitant]
     Dosage: 1/DAY
  8. MOPRAL [Concomitant]
     Dosage: 20 MG, 1 TABLET/DAY
     Route: 048
  9. PRIMPERAN [Concomitant]
     Dosage: 3/DAY
  10. ARANESP [Concomitant]
     Dosage: 300 MG, 1 INJECTION/3WEEKS

REACTIONS (1)
  - SUDDEN DEATH [None]
